FAERS Safety Report 5626068-2 (Version None)
Quarter: 2008Q1

REPORT INFORMATION
  Report Type: 
  Country: None (occurrence: None)
  Receive Date: 20080214
  Receipt Date: 20080212
  Transmission Date: 20080703
  Serious: Yes (Hospitalization)
  Sender: FDA-Public Use
  Company Number: US-BRISTOL-MYERS SQUIBB COMPANY-14074314

PATIENT
  Age: 55 Year
  Sex: Male
  Weight: 56 kg

DRUGS (18)
  1. CARBOPLATIN [Suspect]
     Indication: NON-SMALL CELL LUNG CANCER
     Route: 042
     Dates: start: 20071017, end: 20080109
  2. ENZASTAURIN [Suspect]
     Indication: NON-SMALL CELL LUNG CANCER
     Dosage: 500 MG 1/DAY FROM 01OCT07-25JAN08,117DAYS.
     Dates: start: 20071010, end: 20071010
  3. PEMETREXED DISODIUM [Suspect]
     Indication: NON-SMALL CELL LUNG CANCER
     Route: 042
     Dates: start: 20071017, end: 20080109
  4. FOLIC ACID [Concomitant]
     Dates: start: 20071003
  5. VITAMIN B-12 [Concomitant]
     Dates: start: 20071003
  6. DECADRON [Concomitant]
     Dates: start: 20071016, end: 20080110
  7. KYTRIL [Concomitant]
     Dates: start: 20071010, end: 20080125
  8. PHENERGAN HCL [Concomitant]
     Dates: start: 20070925
  9. MIRALAX [Concomitant]
     Dates: start: 20071011, end: 20080125
  10. MS CONTIN [Concomitant]
     Dates: start: 20071017
  11. LORTAB [Concomitant]
     Dates: start: 20070918, end: 20080125
  12. MEGACE [Concomitant]
     Dates: start: 20071024, end: 20080125
  13. REGLAN [Concomitant]
     Dates: start: 20071022, end: 20080125
  14. TUSSIONEX [Concomitant]
     Dates: start: 20071002, end: 20080125
  15. ARANESP [Concomitant]
     Dates: start: 20071029
  16. SENOKOT [Concomitant]
     Dates: start: 20071010
  17. TYLENOL (CAPLET) [Concomitant]
  18. MORPHINE SULFATE [Concomitant]

REACTIONS (1)
  - HYPOVOLAEMIA [None]
